FAERS Safety Report 9366227 (Version 1)
Quarter: 2013Q2

REPORT INFORMATION
  Report Type: Spontaneous
  Country: US (occurrence: None)
  Receive Date: 20130620
  Receipt Date: 20130620
  Transmission Date: 20140414
  Serious: Yes (Hospitalization)
  Sender: FDA-Public Use
  Company Number: 2013AP006057

PATIENT
  Age: 32 Year
  Sex: Female

DRUGS (4)
  1. GABAPENTIN [Suspect]
  2. TRAMADOL HYDROCHLORIDE TABLETS [Suspect]
  3. SERTRALINE HYDROCHLORIDE TABLETS [Suspect]
  4. METHADONE [Suspect]
     Indication: DRUG ABUSE

REACTIONS (7)
  - Serotonin syndrome [None]
  - Myoclonus [None]
  - Convulsion [None]
  - Tachycardia [None]
  - Fall [None]
  - Joint injury [None]
  - Drug abuse [None]
